FAERS Safety Report 10290021 (Version 1)
Quarter: 2014Q3

REPORT INFORMATION
  Report Type: Spontaneous
  Country: US (occurrence: None)
  Receive Date: 20140707
  Receipt Date: 20140707
  Transmission Date: 20150326
  Serious: Yes (Other)
  Sender: FDA-Public Use
  Company Number: None

PATIENT
  Age: 58 Year
  Sex: Male
  Weight: 81.65 kg

DRUGS (1)
  1. ATORVASTATIN 20MG [Suspect]
     Active Substance: ATORVASTATIN
     Indication: BLOOD CHOLESTEROL INCREASED
     Dosage: 1 TABLET BY MOUTH AT BEDTIME, ONCE DAILY, TAKEN BY MOUTH
     Route: 048
     Dates: start: 20140530, end: 20140630

REACTIONS (2)
  - Blood pressure increased [None]
  - Discomfort [None]

NARRATIVE: CASE EVENT DATE: 20140601
